FAERS Safety Report 13662073 (Version 1)
Quarter: 2017Q2

REPORT INFORMATION
  Report Type: Spontaneous
  Country: US (occurrence: US)
  Receive Date: 20170616
  Receipt Date: 20170616
  Transmission Date: 20170830
  Serious: No
  Sender: FDA-Public Use
  Company Number: US-BIOGEN-2017BI00415120

PATIENT
  Sex: Female
  Weight: 56.79 kg

DRUGS (1)
  1. TECFIDERA [Suspect]
     Active Substance: DIMETHYL FUMARATE
     Indication: MULTIPLE SCLEROSIS
     Route: 065
     Dates: start: 201505, end: 201612

REACTIONS (4)
  - Mood swings [Unknown]
  - Maternal exposure during pregnancy [Recovered/Resolved]
  - Anxiety [Unknown]
  - Perinatal depression [Unknown]
